FAERS Safety Report 6955503-2 (Version None)
Quarter: 2010Q3

REPORT INFORMATION
  Report Type: 
  Country: None (occurrence: None)
  Receive Date: 20100826
  Receipt Date: 20100826
  Transmission Date: 20110219
  Serious: Yes (Hospitalization)
  Sender: FDA-Public Use
  Company Number: None

PATIENT
  Age: 68 Year
  Sex: Female

DRUGS (7)
  1. RANIBIZUMAB 0.5 MG [Suspect]
     Indication: PRESUMED OCULAR HISTOPLASMOSIS SYNDROME
     Dosage: 0.5 MG, PRN INTRAVITREOUS
     Dates: start: 20090120, end: 20090416
  2. RANIBIZUMAB 0.5 MG [Suspect]
     Indication: PRESUMED OCULAR HISTOPLASMOSIS SYNDROME
     Dosage: 0.5 MG, PRN INTRAVITREOUS
     Dates: start: 20091120, end: 20091215
  3. LEXAPRO [Concomitant]
  4. ZYRTEC [Concomitant]
  5. FISH OIL [Concomitant]
  6. VITAMIN E [Concomitant]
  7. M.V.I. [Concomitant]

REACTIONS (3)
  - BLOOD PRESSURE SYSTOLIC INCREASED [None]
  - DIZZINESS [None]
  - NAUSEA [None]
